FAERS Safety Report 21410879 (Version 1)
Quarter: 2022Q4

REPORT INFORMATION
  Report Type: Spontaneous
  Country: DE (occurrence: DE)
  Receive Date: 20221005
  Receipt Date: 20221005
  Transmission Date: 20230112
  Serious: Yes (Life-Threatening, Hospitalization, Other)
  Sender: FDA-Public Use
  Company Number: DE-PFIZER INC-PV202200070706

PATIENT
  Age: 7 Year
  Sex: Male
  Weight: 20 kg

DRUGS (4)
  1. GENOTROPIN [Suspect]
     Active Substance: SOMATROPIN
     Indication: Growth disorder
     Dosage: 0.1 IU/KG PER DAY
     Route: 058
  2. ZINC [Concomitant]
     Active Substance: ZINC
     Dosage: 3 MG/KG, DAILY
  3. FOLIC ACID [Concomitant]
     Active Substance: FOLIC ACID
     Dosage: 0.75 MG/KG, DAILY
  4. RECORMON [ERYTHROPOIETIN HUMAN] [Concomitant]
     Dosage: 100 IU/KG, WEEKLY

REACTIONS (2)
  - Intracranial pressure increased [Recovered/Resolved]
  - Angle closure glaucoma [Recovered/Resolved]
